FAERS Safety Report 14536355 (Version 1)
Quarter: 2018Q1

REPORT INFORMATION
  Report Type: Spontaneous
  Country: GB (occurrence: FR)
  Receive Date: 20180215
  Receipt Date: 20180215
  Transmission Date: 20180509
  Serious: Yes (Hospitalization)
  Sender: FDA-Public Use
  Company Number: FR-FRESENIUS KABI-FK201801665

PATIENT
  Age: 34 Year
  Sex: Female

DRUGS (2)
  1. PROPOFOL (MANUFACTURER UNKNOWN) [Suspect]
     Active Substance: PROPOFOL
     Indication: GENERAL ANAESTHESIA
     Route: 042
     Dates: start: 20180105, end: 20180105
  2. CELOCURINE [Suspect]
     Active Substance: SUCCINYLCHOLINE CHLORIDE
     Indication: GENERAL ANAESTHESIA
     Route: 042
     Dates: start: 20180105, end: 20180105

REACTIONS (3)
  - Anaphylactic reaction [Recovered/Resolved]
  - Tachycardia [Recovered/Resolved]
  - Urticaria [Recovered/Resolved]

NARRATIVE: CASE EVENT DATE: 20180105
